FAERS Safety Report 10302641 (Version 2)
Quarter: 2014Q4

REPORT INFORMATION
  Report Type: Spontaneous
  Country: US (occurrence: None)
  Receive Date: 20140709
  Receipt Date: 20141023
  Transmission Date: 20150528
  Serious: Yes (Other)
  Sender: FDA-Public Use
  Company Number: 54973 AE # 1545

PATIENT
  Age: 1 Year
  Sex: Male

DRUGS (1)
  1. BABY TEETHING [Suspect]
     Active Substance: ARABICA COFFEE BEAN\ATROPA BELLADONNA\CALCIUM PHOSPHATE\CHAMOMILE
     Indication: TEETHING
     Dosage: 1 TAB QD OR BID X 2 MOS.

REACTIONS (6)
  - Irritability [None]
  - Product contamination microbial [None]
  - Crying [None]
  - Tremor [None]
  - Eye movement disorder [None]
  - Insomnia [None]

NARRATIVE: CASE EVENT DATE: 20140612
